FAERS Safety Report 6678556-8 (Version None)
Quarter: 2010Q2

REPORT INFORMATION
  Report Type: 
  Country: None (occurrence: None)
  Receive Date: 20100413
  Receipt Date: 20100401
  Transmission Date: 20101027
  Serious: Yes (Other)
  Sender: FDA-Public Use
  Company Number: JP-JNJFOC-20100401232

PATIENT
  Sex: Female

DRUGS (3)
  1. DOXORUBICIN HCL (DOXIL) [Suspect]
     Indication: OVARIAN CANCER RECURRENT
     Route: 042
  2. KYTRIL [Concomitant]
     Indication: PROPHYLAXIS
     Route: 050
  3. DECADRON [Concomitant]
     Indication: PROPHYLAXIS
     Route: 050

REACTIONS (2)
  - DYSPNOEA [None]
  - FLUSHING [None]
